FAERS Safety Report 8991318 (Version 3)
Quarter: 2013Q1

REPORT INFORMATION
  Report Type: Spontaneous
  Country: DE (occurrence: DE)
  Receive Date: 20121230
  Receipt Date: 20130306
  Transmission Date: 20140127
  Serious: Yes (Hospitalization, Other)
  Sender: FDA-Public Use
  Company Number: DE-AMGEN-DEUSP2012083269

PATIENT
  Age: 71 Year
  Sex: Female
  Weight: 86 kg

DRUGS (7)
  1. ENBREL [Suspect]
     Indication: ANKYLOSING SPONDYLITIS
     Dosage: 50 MG, WEEKLY
     Route: 058
     Dates: start: 20100622, end: 20121202
  2. L-THYROXIN [Concomitant]
     Dosage: 125 MG, UNK
  3. BISOHEXAL [Concomitant]
     Dosage: 5 MG, UNK
  4. DIOVANE [Concomitant]
     Dosage: UNK
  5. AMINEURIN [Concomitant]
     Indication: DIZZINESS
     Dosage: UNK
  6. DICLOFENAC [Concomitant]
     Dosage: 75 MG, AS NEEDED
     Route: 048
     Dates: start: 200801
  7. NEXIUM                             /01479302/ [Concomitant]
     Dosage: 40 MG, UNK
     Route: 048
     Dates: start: 200701

REACTIONS (3)
  - Vaginal haemorrhage [Not Recovered/Not Resolved]
  - Endometrial adenocarcinoma [Not Recovered/Not Resolved]
  - Anaemia [Not Recovered/Not Resolved]
